FAERS Safety Report 5510052-3 (Version None)
Quarter: 2007Q4

REPORT INFORMATION
  Report Type: 
  Country: None (occurrence: None)
  Receive Date: 20071108
  Receipt Date: 20070907
  Transmission Date: 20080405
  Serious: No
  Sender: FDA-Public Use
  Company Number: US-ABBOTT-07P-163-0417103-00

PATIENT
  Sex: Female
  Weight: 65.83 kg

DRUGS (1)
  1. BIAXIN [Suspect]
     Indication: SINUSITIS
     Route: 048
     Dates: start: 19970101, end: 19970101

REACTIONS (1)
  - LOWER GASTROINTESTINAL HAEMORRHAGE [None]
